FAERS Safety Report 8376043-2 (Version None)
Quarter: 2012Q2

REPORT INFORMATION
  Report Type: 
  Country: None (occurrence: None)
  Receive Date: 20120522
  Receipt Date: 20120514
  Transmission Date: 20120825
  Serious: Yes (Other)
  Sender: FDA-Public Use
  Company Number: PHEH2012US010241

PATIENT
  Age: 52 Year
  Sex: Male

DRUGS (1)
  1. DESFERAL [Suspect]
     Indication: IRON OVERLOAD

REACTIONS (4)
  - RENAL FAILURE CHRONIC [None]
  - POST HERPETIC NEURALGIA [None]
  - HEPATIC CIRRHOSIS [None]
  - HEPATITIS C [None]
